FAERS Safety Report 25810581 (Version 1)
Quarter: 2025Q3

REPORT INFORMATION
  Report Type: Spontaneous
  Country: US (occurrence: US)
  Receive Date: 20250917
  Receipt Date: 20250917
  Transmission Date: 20251021
  Serious: Yes (Other)
  Sender: COOPERSURGICAL
  Company Number: US-COOPERSURGICAL, INC.-2025CPS006700

PATIENT
  Sex: Female
  Weight: 90.249 kg

DRUGS (3)
  1. PARAGARD T 380A [Suspect]
     Active Substance: COPPER
     Indication: Contraception
     Route: 015
     Dates: start: 20131013
  2. ATORVASTATIN [Concomitant]
     Active Substance: ATORVASTATIN
     Dates: start: 20200908
  3. PANTOPRAZOLE [Concomitant]
     Active Substance: PANTOPRAZOLE
     Dates: start: 20211005

REACTIONS (15)
  - Surgery [Recovered/Resolved]
  - Uterine leiomyoma [Unknown]
  - Device breakage [Recovered/Resolved]
  - Foreign body in reproductive tract [Recovered/Resolved]
  - Complication of device removal [Recovered/Resolved]
  - Embedded device [Recovered/Resolved]
  - Pelvic inflammatory disease [Unknown]
  - Anxiety [Unknown]
  - Endometrial thickening [Unknown]
  - Inflammation [Unknown]
  - Abnormal uterine bleeding [Unknown]
  - Device dislocation [Recovered/Resolved]
  - Device expulsion [Recovered/Resolved]
  - Vaginal infection [Unknown]
  - Pain [Unknown]

NARRATIVE: CASE EVENT DATE: 20190101
